FAERS Safety Report 13853620 (Version 2)
Quarter: 2017Q3

REPORT INFORMATION
  Report Type: Spontaneous
  Country: US (occurrence: US)
  Receive Date: 20170809
  Receipt Date: 20170828
  Transmission Date: 20171127
  Serious: Yes (Other)
  Sender: FDA-Public Use
  Company Number: US-009507513-1708USA000489

PATIENT
  Age: 72 Year
  Sex: Female

DRUGS (1)
  1. PRINIVIL [Suspect]
     Active Substance: LISINOPRIL
     Dosage: UNK
     Route: 048
     Dates: start: 20140224

REACTIONS (10)
  - Atrial fibrillation [Not Recovered/Not Resolved]
  - Large intestine polyp [Not Recovered/Not Resolved]
  - Coronary artery disease [Not Recovered/Not Resolved]
  - Swelling [Unknown]
  - Palpitations [Not Recovered/Not Resolved]
  - Coronary angioplasty [Not Recovered/Not Resolved]
  - Cardiac failure congestive [Not Recovered/Not Resolved]
  - Drug hypersensitivity [Unknown]
  - Acute myocardial infarction [Not Recovered/Not Resolved]
  - Tobacco abuse [Not Recovered/Not Resolved]

NARRATIVE: CASE EVENT DATE: 20140224
